FAERS Safety Report 9571376 (Version 2)
Quarter: 2013Q4

REPORT INFORMATION
  Report Type: Report from Study
  Country: US (occurrence: US)
  Receive Date: 20131001
  Receipt Date: 20131001
  Transmission Date: 20140711
  Serious: Yes (Other)
  Sender: FDA-Public Use
  Company Number: US-SANOFI-AVENTIS-2013SA072057

PATIENT
  Sex: Male

DRUGS (1)
  1. AUBAGIO [Suspect]
     Route: 048

REACTIONS (7)
  - Sleep apnoea syndrome [Unknown]
  - Adverse event [Unknown]
  - Local swelling [Unknown]
  - Thinking abnormal [Unknown]
  - Ill-defined disorder [Unknown]
  - Multiple sclerosis [Unknown]
  - Gait disturbance [Unknown]
